FAERS Safety Report 15341734 (Version 1)
Quarter: 2018Q3

REPORT INFORMATION
  Report Type: Report from Study
  Country: None (occurrence: CO)
  Receive Date: 20180901
  Receipt Date: 20180901
  Transmission Date: 20181010
  Serious: Yes (Hospitalization, Other)
  Sender: FDA-Public Use
  Company Number: CO-ABBVIE-18K-036-2472613-00

PATIENT
  Sex: Female
  Weight: 85 kg

DRUGS (2)
  1. METHOTREXATE. [Concomitant]
     Active Substance: METHOTREXATE
     Indication: PRODUCT USED FOR UNKNOWN INDICATION
  2. HUMIRA [Suspect]
     Active Substance: ADALIMUMAB
     Indication: RHEUMATOID ARTHRITIS
     Route: 058
     Dates: start: 20160929, end: 20180614

REACTIONS (3)
  - Synovial sarcoma [Recovering/Resolving]
  - Inflammation [Recovering/Resolving]
  - Rheumatoid arthritis [Recovering/Resolving]

NARRATIVE: CASE EVENT DATE: 201801
